FAERS Safety Report 4492500-3 (Version None)
Quarter: 2004Q4

REPORT INFORMATION
  Report Type: 
  Country: None (occurrence: None)
  Receive Date: 20041104
  Receipt Date: 20040824
  Transmission Date: 20050328
  Serious: No
  Sender: FDA-Public Use
  Company Number: 200416385US

PATIENT
  Sex: 0

DRUGS (5)
  1. TAXOTERE [Suspect]
     Indication: PROSTATE CANCER
     Route: 042
     Dates: start: 20040513
  2. DECADRON [Concomitant]
     Route: 042
  3. ZOFRAN [Concomitant]
     Route: 042
  4. BENADRYL /OLD FORM/ [Concomitant]
     Route: 042
  5. PEPCID [Concomitant]
     Route: 042

REACTIONS (3)
  - ERYTHEMA [None]
  - EXTRAVASATION [None]
  - THROMBOPHLEBITIS SUPERFICIAL [None]
